FAERS Safety Report 4421583-1 (Version None)
Quarter: 2004Q3

REPORT INFORMATION
  Report Type: 
  Country: None (occurrence: None)
  Receive Date: 20040809
  Receipt Date: 20040809
  Transmission Date: 20050211
  Serious: Yes (Hospitalization)
  Sender: FDA-Public Use
  Company Number: None

PATIENT
  Age: 61 Year
  Sex: Female
  Weight: 68.0396 kg

DRUGS (10)
  1. INSULIN [Suspect]
     Indication: DIABETES MELLITUS
     Dosage: SQ
     Route: 058
  2. GLIPIZIDE [Suspect]
     Indication: DIABETES MELLITUS
     Dosage: PO
     Route: 048
  3. AMARYL [Suspect]
     Indication: DIABETES MELLITUS
  4. ENALOPRIL [Concomitant]
  5. METOPROLOL [Concomitant]
  6. FUROSEMIDE [Concomitant]
  7. DIGOXIN [Concomitant]
  8. ISOSONTIDE DIN [Concomitant]
  9. ZOCOR [Concomitant]
  10. TYLENOL [Concomitant]

REACTIONS (1)
  - HYPOGLYCAEMIA [None]
